FAERS Safety Report 23045616 (Version 1)
Quarter: 2023Q4

REPORT INFORMATION
  Report Type: Spontaneous
  Country: NO (occurrence: NO)
  Receive Date: 20231009
  Receipt Date: 20231009
  Transmission Date: 20240110
  Serious: Yes (Other)
  Sender: FDA-Public Use
  Company Number: None

PATIENT
  Age: 49 Year
  Sex: Female
  Weight: 116 kg

DRUGS (4)
  1. PARLODEL [Suspect]
     Active Substance: BROMOCRIPTINE MESYLATE
     Indication: Hyperprolactinaemia
     Dosage: 5 MILLIGRAM, QD
     Route: 065
     Dates: start: 200905
  2. PARLODEL [Suspect]
     Active Substance: BROMOCRIPTINE MESYLATE
     Indication: Pituitary tumour benign
  3. VITAMIN D [Concomitant]
     Active Substance: VITAMIN D NOS
     Dosage: 20 MICROGRAM
     Route: 065
  4. ESOMEPRAZOLE [Concomitant]
     Active Substance: ESOMEPRAZOLE
     Dosage: 20 MILLIGRAM, QD
     Route: 065
     Dates: start: 2018

REACTIONS (11)
  - Hallucinations, mixed [Recovered/Resolved]
  - Palpitations [Not Recovered/Not Resolved]
  - Weight loss poor [Unknown]
  - Nightmare [Unknown]
  - Poor quality sleep [Unknown]
  - Food craving [Unknown]
  - Body mass index increased [Unknown]
  - Abnormal dreams [Unknown]
  - Insomnia [Unknown]
  - Heart rate increased [Unknown]
  - Binge eating [Unknown]

NARRATIVE: CASE EVENT DATE: 20220321
